FAERS Safety Report 23952717 (Version 5)
Quarter: 2024Q4

REPORT INFORMATION
  Report Type: Spontaneous
  Country: US (occurrence: US)
  Receive Date: 20240607
  Receipt Date: 20241115
  Transmission Date: 20250114
  Serious: No
  Sender: PFIZER
  Company Number: US-PFIZER INC-PV202400060913

PATIENT
  Age: 10 Year
  Sex: Male

DRUGS (5)
  1. GENOTROPIN [Suspect]
     Active Substance: SOMATROPIN
     Indication: Growth hormone deficiency
     Dosage: UNK
     Dates: start: 2016
  2. GENOTROPIN [Suspect]
     Active Substance: SOMATROPIN
     Indication: Hypopituitarism
     Dosage: 1.8 MG 4 DAYS PER WEEK AND 1.6 MG 3 DAYS PER WEEK 30 DAYS
  3. GENOTROPIN [Suspect]
     Active Substance: SOMATROPIN
     Dosage: 1.8 MG 4 DAYS PER WEEK AND 1.6 MG 3 DAYS PER WEEK 30 DAYS
  4. GENOTROPIN [Suspect]
     Active Substance: SOMATROPIN
     Dosage: 1.8 MG, DAILY
  5. GENOTROPIN [Suspect]
     Active Substance: SOMATROPIN
     Dosage: 1.8 MG 3 DAYS PER WEEK AND 2 MG 4 DAYS PER WEEK
     Route: 058

REACTIONS (3)
  - Device breakage [Unknown]
  - Device delivery system issue [Unknown]
  - Drug dose omission by device [Unknown]
